FAERS Safety Report 6042339-2 (Version None)
Quarter: 2009Q1

REPORT INFORMATION
  Report Type: 
  Country: None (occurrence: None)
  Receive Date: 20090116
  Receipt Date: 20090107
  Transmission Date: 20090719
  Serious: Yes (Other)
  Sender: FDA-Public Use
  Company Number: KR-PFIZER INC-2009153576

PATIENT

DRUGS (2)
  1. ZELDOX [Suspect]
     Indication: SCHIZOPHRENIA
     Route: 048
  2. PROCYCLIDINE HYDROCHLORIDE [Concomitant]
     Route: 048

REACTIONS (1)
  - OBSESSIVE-COMPULSIVE DISORDER [None]
